FAERS Safety Report 4562149-2 (Version None)
Quarter: 2005Q1

REPORT INFORMATION
  Report Type: 
  Country: None (occurrence: None)
  Receive Date: 20050125
  Receipt Date: 20050110
  Transmission Date: 20050727
  Serious: Yes (Other)
  Sender: FDA-Public Use
  Company Number: 2004S1003548

PATIENT
  Age: 11 Year
  Sex: Female

DRUGS (11)
  1. CYSTAGON [Suspect]
     Indication: CYSTINOSIS
     Dosage: 90MG/KG/DAY, THEN 53MG/KG/D, ORAL
     Route: 048
     Dates: start: 19960502
  2. INSULIN [Concomitant]
  3. INSULIN ISOPHANE [Concomitant]
  4. SOMATROPINE [Concomitant]
  5. CALCIDIOL [Concomitant]
  6. EPOETIN BETA [Concomitant]
  7. SACCHARATED IRON OXIDE [Concomitant]
  8. FOLIC ACID [Concomitant]
  9. RIBOFLAVIN TAB [Concomitant]
  10. PYRIDOXINE HCL [Concomitant]
  11. POTASSIUM SUPPLEMENTATION [Concomitant]

REACTIONS (7)
  - BLOOD GLUCOSE INCREASED [None]
  - DIALYSIS [None]
  - MASS [None]
  - MYOPATHY [None]
  - OSTEOSCLEROSIS [None]
  - SKIN LESION [None]
  - SKIN NODULE [None]
